FAERS Safety Report 18929105 (Version 1)
Quarter: 2021Q1

REPORT INFORMATION
  Report Type: Spontaneous
  Country: IN (occurrence: IN)
  Receive Date: 20210223
  Receipt Date: 20210223
  Transmission Date: 20210420
  Serious: Yes (Other)
  Sender: FDA-Public Use
  Company Number: IN-PFIZER INC-2019191364

PATIENT
  Age: 67 Year
  Sex: Male

DRUGS (4)
  1. SUTENT [Suspect]
     Active Substance: SUNITINIB MALATE
     Indication: METASTATIC RENAL CELL CARCINOMA
     Dosage: 50 MG, 1X/DAY
     Route: 048
     Dates: start: 20190502
  2. SUTENT [Suspect]
     Active Substance: SUNITINIB MALATE
     Dosage: 37.5 MG, CYCLIC (DAILY FOR 14 DAYS, SAME COURSE TO BE REPEATED WITH GAP OF 15 DAYS FOR 6 MONTHS)
  3. SUTENT [Suspect]
     Active Substance: SUNITINIB MALATE
     Dosage: 37.5 MG, 1X/DAY
     Route: 048
  4. SUTENT [Suspect]
     Active Substance: SUNITINIB MALATE
     Dosage: 37.5 MG, CYCLIC (1?0?0 FOR 2 WEEKS THEN 10 DAYS GAP FOR 3 MONTHS)
     Route: 048

REACTIONS (10)
  - Hand fracture [Unknown]
  - Malaise [Unknown]
  - Faeces discoloured [Not Recovered/Not Resolved]
  - Lower limb fracture [Unknown]
  - Asthenia [Unknown]
  - Yellow skin [Unknown]
  - Pyrexia [Unknown]
  - Decreased appetite [Unknown]
  - Mucosal inflammation [Unknown]
  - Off label use [Unknown]

NARRATIVE: CASE EVENT DATE: 2019
